FAERS Safety Report 13298767 (Version 1)
Quarter: 2017Q1

REPORT INFORMATION
  Report Type: Other
  Country: CH (occurrence: CH)
  Receive Date: 20170306
  Receipt Date: 20170306
  Transmission Date: 20170428
  Serious: Yes (Hospitalization)
  Sender: FDA-Public Use
  Company Number: CH-VALIDUS PHARMACEUTICALS LLC-CH-2017VAL000287

PATIENT
  Age: 15 Year
  Sex: Female

DRUGS (1)
  1. LASIX [Suspect]
     Active Substance: FUROSEMIDE
     Indication: DRUG ABUSE
     Dosage: UNK
     Route: 048
     Dates: start: 2016, end: 2017

REACTIONS (10)
  - Hypokalaemia [Recovering/Resolving]
  - Electrocardiogram QT prolonged [Recovered/Resolved]
  - Metabolic alkalosis [Recovered/Resolved]
  - Blood uric acid increased [Unknown]
  - Hypoaldosteronism [Unknown]
  - Toxicity to various agents [Recovered/Resolved]
  - Asthenia [Recovered/Resolved]
  - Hypochloraemia [Recovering/Resolving]
  - Drug abuse [Unknown]
  - Hyponatraemia [Recovered/Resolved]

NARRATIVE: CASE EVENT DATE: 20170131
